FAERS Safety Report 18243075 (Version 1)
Quarter: 2020Q3

REPORT INFORMATION
  Report Type: Spontaneous
  Country: CN (occurrence: CN)
  Receive Date: 20200908
  Receipt Date: 20200908
  Transmission Date: 20201103
  Serious: Yes (Other)
  Sender: FDA-Public Use
  Company Number: CN-PFIZER INC-2020335771

PATIENT
  Age: 29 Year
  Sex: Female
  Weight: 57 kg

DRUGS (2)
  1. CELECOXIB. [Suspect]
     Active Substance: CELECOXIB
     Indication: INTERVERTEBRAL DISC PROTRUSION
     Dosage: 0.2 G, 1X/DAY
     Route: 048
     Dates: start: 20200801, end: 20200803
  2. METHYLCOBALAMIN. [Concomitant]
     Active Substance: METHYLCOBALAMIN
     Indication: INTERVERTEBRAL DISC PROTRUSION
     Dosage: 0.5 MG, 3X/DAY
     Route: 048
     Dates: start: 20200801, end: 20200803

REACTIONS (9)
  - Rash pruritic [Recovered/Resolved]
  - Flushing [Recovered/Resolved]
  - Scratch [Recovered/Resolved]
  - Product use in unapproved indication [Unknown]
  - Off label use [Unknown]
  - Papule [Recovered/Resolved]
  - Erythema [Recovered/Resolved]
  - Pruritus [Recovered/Resolved]
  - Drug hypersensitivity [Recovered/Resolved]

NARRATIVE: CASE EVENT DATE: 20200801
